FAERS Safety Report 20965075 (Version 1)
Quarter: 2022Q2

REPORT INFORMATION
  Report Type: Spontaneous
  Country: AT (occurrence: AT)
  Receive Date: 20220616
  Receipt Date: 20220616
  Transmission Date: 20220720
  Serious: Yes (Other)
  Sender: FDA-Public Use
  Company Number: None

PATIENT
  Age: 7 Year
  Sex: Female

DRUGS (1)
  1. PANTELMIN [Suspect]
     Active Substance: MEBENDAZOLE
     Indication: Helminthic infection
     Route: 065
     Dates: start: 20220520, end: 20220520

REACTIONS (6)
  - Circulatory collapse [Unknown]
  - Type I hypersensitivity [Unknown]
  - Eyelid oedema [Unknown]
  - Lip swelling [Unknown]
  - Nausea [Unknown]
  - Vomiting [Unknown]

NARRATIVE: CASE EVENT DATE: 20220520
